FAERS Safety Report 6602235-6 (Version None)
Quarter: 2010Q1

REPORT INFORMATION
  Report Type: 
  Country: None (occurrence: None)
  Receive Date: 20100225
  Receipt Date: 20100215
  Transmission Date: 20100710
  Serious: Yes (Death, Hospitalization)
  Sender: FDA-Public Use
  Company Number: ES-GILEAD-2010-0027071

PATIENT
  Sex: Female

DRUGS (2)
  1. AMBRISENTAN [Suspect]
     Indication: PULMONARY HYPERTENSION
     Route: 048
  2. BOSENTAN [Concomitant]
     Route: 065

REACTIONS (4)
  - DEATH [None]
  - HAEMODYNAMIC INSTABILITY [None]
  - HYPOTENSION [None]
  - ILL-DEFINED DISORDER [None]
